FAERS Safety Report 6820402-3 (Version None)
Quarter: 2010Q3

REPORT INFORMATION
  Report Type: 
  Country: None (occurrence: None)
  Receive Date: 20100707
  Receipt Date: 20100623
  Transmission Date: 20110219
  Serious: Yes (Life-Threatening, Hospitalization)
  Sender: FDA-Public Use
  Company Number: CH-MYLANLABS-2010S1011156

PATIENT
  Age: 35 Year
  Sex: Female
  Weight: 55 kg

DRUGS (4)
  1. VERAPAMIL [Suspect]
     Indication: SUICIDE ATTEMPT
     Dosage: 20 TABLETS OF CR VERAPAMIL 240MG
     Route: 048
  2. VERAPAMIL [Suspect]
     Indication: MIGRAINE
     Dosage: 20 TABLETS OF CR VERAPAMIL 240MG
     Route: 048
  3. VERAPAMIL [Suspect]
     Route: 048
  4. VERAPAMIL [Suspect]
     Route: 048

REACTIONS (8)
  - ATRIOVENTRICULAR BLOCK COMPLETE [None]
  - BRADYCARDIA [None]
  - CARDIOGENIC SHOCK [None]
  - GRAND MAL CONVULSION [None]
  - ILEUS PARALYTIC [None]
  - INTENTIONAL OVERDOSE [None]
  - PULMONARY OEDEMA [None]
  - RENAL FAILURE ACUTE [None]
